FAERS Safety Report 10227818 (Version 1)
Quarter: 2014Q2

REPORT INFORMATION
  Report Type: Spontaneous
  Country: US (occurrence: None)
  Receive Date: 20140609
  Receipt Date: 20140609
  Transmission Date: 20141212
  Serious: No
  Sender: FDA-Public Use
  Company Number: None

PATIENT
  Age: 65 Year
  Sex: Male
  Weight: 110 kg

DRUGS (1)
  1. DABIGATRAN [Suspect]
     Indication: ATRIAL FIBRILLATION
     Dosage: MG    PO
     Route: 048
     Dates: start: 20140428, end: 20140509

REACTIONS (4)
  - Nausea [None]
  - Nervousness [None]
  - Vomiting [None]
  - Malaise [None]
